FAERS Safety Report 6008138-2 (Version None)
Quarter: 2008Q4

REPORT INFORMATION
  Report Type: 
  Country: None (occurrence: None)
  Receive Date: 20081217
  Receipt Date: 20080715
  Transmission Date: 20090506
  Serious: No
  Sender: FDA-Public Use
  Company Number: US-ASTRAZENECA-2008UW14152

PATIENT
  Age: 91 Year
  Sex: Female

DRUGS (7)
  1. CRESTOR [Suspect]
     Indication: BLOOD CHOLESTEROL INCREASED
     Route: 048
     Dates: start: 20080713
  2. LEVEXAL [Concomitant]
  3. PREVACID [Concomitant]
  4. VITAMINS [Concomitant]
  5. CALCIUM [Concomitant]
  6. FISH OIL [Concomitant]
  7. ASPIRIN [Concomitant]

REACTIONS (2)
  - NAUSEA [None]
  - SKIN IRRITATION [None]
